FAERS Safety Report 23182907 (Version 1)
Quarter: 2023Q4

REPORT INFORMATION
  Report Type: Spontaneous
  Country: US (occurrence: None)
  Receive Date: 20231114
  Receipt Date: 20231114
  Transmission Date: 20240110
  Serious: No
  Sender: FDA-Public Use
  Company Number: None

PATIENT
  Age: 42 Year
  Sex: Female

DRUGS (1)
  1. OCREVUS [Suspect]
     Active Substance: OCRELIZUMAB
     Indication: Multiple sclerosis

REACTIONS (5)
  - Influenza like illness [None]
  - Optic neuritis [None]
  - Blindness [None]
  - Multiple sclerosis relapse [None]
  - Multiple sclerosis [None]

NARRATIVE: CASE EVENT DATE: 20231114
